FAERS Safety Report 25042262 (Version 2)
Quarter: 2025Q1

REPORT INFORMATION
  Report Type: Spontaneous
  Country: JP (occurrence: JP)
  Receive Date: 20250305
  Receipt Date: 20250321
  Transmission Date: 20250408
  Serious: Yes (Hospitalization)
  Sender: Alora Pharma
  Company Number: JP-OSMOTICA PHARMACEUTICALS-2025ALO00080

PATIENT
  Age: 76 Year
  Sex: Female
  Weight: 39.2 kg

DRUGS (5)
  1. DONEPEZIL HYDROCHLORIDE [Suspect]
     Active Substance: DONEPEZIL HYDROCHLORIDE
     Dosage: 3 MG, 1X/DAY
  2. CARBIDOPA AND LEVODOPA [Concomitant]
     Active Substance: CARBIDOPA\LEVODOPA
  3. CARBIDOPA AND LEVODOPA [Concomitant]
     Active Substance: CARBIDOPA\LEVODOPA
  4. ZONISAMIDE [Concomitant]
     Active Substance: ZONISAMIDE
     Dosage: 100 MG, 1X/DAY
  5. ROTIGOTINE [Concomitant]
     Active Substance: ROTIGOTINE
     Dosage: 27 MG, 1X/DAY

REACTIONS (2)
  - Dropped head syndrome [Recovered/Resolved]
  - Dystonia [Recovered/Resolved]
